FAERS Safety Report 8285173-5 (Version None)
Quarter: 2012Q2

REPORT INFORMATION
  Report Type: 
  Country: None (occurrence: None)
  Receive Date: 20120413
  Receipt Date: 20120227
  Transmission Date: 20120825
  Serious: No
  Sender: FDA-Public Use
  Company Number: US-ASTRAZENECA-2012SE13799

PATIENT
  Age: 33 Year
  Sex: Female
  Weight: 127 kg

DRUGS (10)
  1. NEXIUM [Suspect]
     Indication: GASTROOESOPHAGEAL REFLUX DISEASE
     Route: 048
  2. SEROQUEL [Suspect]
     Indication: SCHIZOPHRENIA
     Route: 048
  3. ROPINIROLE [Concomitant]
     Indication: RESTLESS LEGS SYNDROME
  4. RANITIDINE [Concomitant]
     Indication: GASTROOESOPHAGEAL REFLUX DISEASE
  5. ZANTAX [Concomitant]
     Indication: ADRENAL DISORDER
  6. PREVACID [Suspect]
     Indication: BIPOLAR II DISORDER
     Route: 048
  7. ZANTAX [Concomitant]
     Indication: ANXIETY
  8. ZANTAX [Concomitant]
     Indication: DEPRESSION
  9. RANITIDINE [Concomitant]
     Indication: DYSPEPSIA
  10. HYDROCODONE BITARTRATE [Concomitant]
     Indication: BACK PAIN

REACTIONS (6)
  - DYSPEPSIA [None]
  - APHAGIA [None]
  - BIPOLAR II DISORDER [None]
  - ADRENAL DISORDER [None]
  - DRUG DOSE OMISSION [None]
  - FIBROMYALGIA [None]
